FAERS Safety Report 16891806 (Version 5)
Quarter: 2021Q3

REPORT INFORMATION
  Report Type: Report from Study
  Country: US (occurrence: US)
  Receive Date: 20191007
  Receipt Date: 20210930
  Transmission Date: 20211014
  Serious: Yes (Death, Hospitalization)
  Sender: FDA-Public Use
  Company Number: US-PFIZER INC-2019422504

PATIENT
  Age: 57 Year
  Sex: Male
  Weight: 107.8 kg

DRUGS (24)
  1. MIRALAX [Concomitant]
     Active Substance: POLYETHYLENE GLYCOL 3350
     Indication: CONSTIPATION
     Dosage: 17 G, AS NEEDED (QD)
     Route: 048
     Dates: start: 20190831
  2. KYTRIL [Concomitant]
     Active Substance: GRANISETRON HYDROCHLORIDE
     Indication: CHEMOTHERAPY
     Dosage: 1?2MG, 1X/DAY
     Route: 048
     Dates: start: 20190830, end: 20190901
  3. ALUMINIUM HYDROXIDE;DIPHENHYDRAMINE HYDROCHLORIDE;LIDOCAINE HYDROCHLOR [Concomitant]
     Indication: STOMATITIS
     Dosage: 10?15ML, AS NEEDED (SPECIAL MOUTHWAS)
     Route: 048
     Dates: start: 20190917, end: 20190927
  4. SENOKOT?S [Concomitant]
     Active Substance: DOCUSATE SODIUM\SENNOSIDES
     Indication: CONSTIPATION
     Dosage: 325?650 MG, AS NEEDED (Q4H)
     Route: 048
     Dates: start: 20190829
  5. VENTOLIN [Concomitant]
     Active Substance: ALBUTEROL SULFATE
     Indication: COUGH
     Dosage: 90 UG, AS NEEDED PER ACTUATION (Q4H)
     Route: 055
     Dates: start: 20190829
  6. MAXIPIME [Concomitant]
     Active Substance: CEFEPIME HYDROCHLORIDE
     Indication: PROPHYLAXIS
     Dosage: 2 G, 3X/DAY (EVERY 8 HOURS)
     Route: 042
     Dates: start: 20190901
  7. MYCOSTATIN [Concomitant]
     Active Substance: NYSTATIN
     Indication: ANTIFUNGAL PROPHYLAXIS
     Dosage: 5 ML, 4X/DAY (SUSPENSION)
     Route: 048
     Dates: start: 20190829, end: 20190830
  8. ATIVAN [Concomitant]
     Active Substance: LORAZEPAM
     Indication: ANXIETY
     Dosage: 1 MG, SINGLE (ONCE)
     Route: 048
     Dates: start: 20190830, end: 20190830
  9. ZYLOPRIM [Concomitant]
     Active Substance: ALLOPURINOL
     Indication: PROPHYLAXIS
     Dosage: 300 MG, 2X/DAY
     Route: 048
     Dates: start: 20190830, end: 20190830
  10. ZYLOPRIM [Concomitant]
     Active Substance: ALLOPURINOL
     Dosage: 300?600 MG, 1X/DAY
     Route: 048
     Dates: start: 20190830, end: 20190905
  11. SUBLIMAZE [Concomitant]
     Active Substance: FENTANYL CITRATE
     Indication: STOMATITIS
     Dosage: 12.5 UG, ONCE
     Route: 042
     Dates: start: 20190909, end: 20190909
  12. OXYCODONE [Concomitant]
     Active Substance: OXYCODONE
     Indication: PAIN IN EXTREMITY
     Dosage: 5?10 MG, AS NEEDED Q4H (IMMEDIATE RELEASE)
     Route: 048
     Dates: start: 20190829
  13. ZOVIRAX [Concomitant]
     Active Substance: ACYCLOVIR
     Indication: ANTIVIRAL PROPHYLAXIS
     Dosage: 800 MG, 1X/DAY
     Route: 048
     Dates: start: 20190830
  14. CELEBREX [Concomitant]
     Active Substance: CELECOXIB
     Indication: PAIN IN EXTREMITY
     Dosage: 200 MG, 2X/DAY
     Route: 048
     Dates: start: 20190829
  15. DAUNORUBICIN [Suspect]
     Active Substance: DAUNORUBICIN
     Indication: ACUTE MYELOID LEUKAEMIA
     Dosage: 150 MG, DAILY BY CONTINUOUS INFUSION
     Route: 041
     Dates: start: 20190830, end: 20190901
  16. LEVOTHYROXINE. [Concomitant]
     Active Substance: LEVOTHYROXINE
     Indication: HYPOTHYROIDISM
     Dosage: 175 UG, 1X/DAY QD AM
     Route: 048
     Dates: start: 20190830
  17. IPRATROPIUM/ALBUTEROL [Concomitant]
     Active Substance: ALBUTEROL\IPRATROPIUM
     Indication: CHRONIC OBSTRUCTIVE PULMONARY DISEASE
     Dosage: 270 ML, AS NEEDED (SOLUTION NEBULIZER)
     Route: 055
     Dates: start: 20190923, end: 20191206
  18. IPRATROPIUM/ALBUTEROL [Concomitant]
     Active Substance: ALBUTEROL\IPRATROPIUM
     Indication: DYSPNOEA
  19. PROVENTIL [Concomitant]
     Active Substance: ALBUTEROL
     Indication: COUGH
     Dosage: 90 UG, AS NEEDED PER ACTUATION (Q4H)
     Route: 055
     Dates: start: 20190829
  20. DELTASONE [Concomitant]
     Active Substance: PREDNISONE
     Indication: POLYMYALGIA RHEUMATICA
     Dosage: 50 MG, ONCE
     Route: 048
     Dates: start: 20190829
  21. LASIX [Concomitant]
     Active Substance: FUROSEMIDE
     Indication: WEIGHT INCREASED
     Dosage: 20 MG, SINGLE (ONCE)
     Route: 042
     Dates: start: 20190902, end: 20190902
  22. CYTARABINE. [Suspect]
     Active Substance: CYTARABINE
     Indication: ACUTE MYELOID LEUKAEMIA
     Dosage: 260 MG,DAILY BY CONTINUOUS INFUSION
     Route: 041
     Dates: start: 20190830, end: 20190906
  23. PLACEBO [Suspect]
     Active Substance: UNSPECIFIED INGREDIENT
     Indication: ACUTE MYELOID LEUKAEMIA
     Dosage: UNK, ONCE DAILY CONTINUOUS
     Route: 048
     Dates: start: 20190830, end: 20190922
  24. SODIUM CHLORIDE. [Concomitant]
     Active Substance: SODIUM CHLORIDE
     Indication: ACUTE MYELOID LEUKAEMIA
     Dosage: 75 ML/HR CONTINUOUS
     Route: 042
     Dates: start: 20190830

REACTIONS (1)
  - Stomatitis [Recovered/Resolved]

NARRATIVE: CASE EVENT DATE: 20190927
